FAERS Safety Report 5613354-5 (Version None)
Quarter: 2008Q1

REPORT INFORMATION
  Report Type: 
  Country: None (occurrence: None)
  Receive Date: 20080130
  Receipt Date: 20080115
  Transmission Date: 20080703
  Serious: Yes (Hospitalization)
  Sender: FDA-Public Use
  Company Number: 2008BI000797

PATIENT
  Age: 57 Year
  Sex: Female
  Weight: 70 kg

DRUGS (2)
  1. AVONEX [Suspect]
     Indication: MULTIPLE SCLEROSIS
     Dosage: 1, QW; IM
     Route: 030
     Dates: start: 20050301
  2. PULSOTHERAPY [Concomitant]

REACTIONS (7)
  - DEPRESSION [None]
  - DIZZINESS [None]
  - FALL [None]
  - HYPERGLYCAEMIA [None]
  - HYPERTENSION [None]
  - INFLUENZA [None]
  - MUSCULAR WEAKNESS [None]
